FAERS Safety Report 13759100 (Version 5)
Quarter: 2018Q1

REPORT INFORMATION
  Report Type: Report from Study
  Country: US (occurrence: US)
  Receive Date: 20170717
  Receipt Date: 20180119
  Transmission Date: 20180508
  Serious: Yes (Hospitalization, Other)
  Sender: FDA-Public Use
  Company Number: US-GILEAD-2017-0283438

PATIENT
  Age: 66 Year
  Sex: Female

DRUGS (5)
  1. AMBRISENTAN [Suspect]
     Active Substance: AMBRISENTAN
     Indication: PRODUCT USED FOR UNKNOWN INDICATION
     Dosage: 10 MG, QD
     Route: 065
     Dates: start: 20141008
  2. ADCIRCA [Concomitant]
     Active Substance: TADALAFIL
  3. MULTAQ [Suspect]
     Active Substance: DRONEDARONE
     Indication: PRODUCT USED FOR UNKNOWN INDICATION
     Route: 065
  4. WARFARIN [Concomitant]
     Active Substance: WARFARIN
  5. DILTIAZEM. [Concomitant]
     Active Substance: DILTIAZEM

REACTIONS (10)
  - Pruritus [Not Recovered/Not Resolved]
  - Insomnia [Unknown]
  - Dizziness [Not Recovered/Not Resolved]
  - Oxygen saturation decreased [Not Recovered/Not Resolved]
  - Unevaluable event [Unknown]
  - Oedema peripheral [Not Recovered/Not Resolved]
  - Dizziness postural [Not Recovered/Not Resolved]
  - Thyroid disorder [Not Recovered/Not Resolved]
  - Vomiting [Unknown]
  - Haemorrhagic stroke [Unknown]
